FAERS Safety Report 25660553 (Version 1)
Quarter: 2025Q3

REPORT INFORMATION
  Report Type: Spontaneous
  Country: JP (occurrence: JP)
  Receive Date: 20250808
  Receipt Date: 20250808
  Transmission Date: 20251020
  Serious: Yes (Other)
  Sender: ELI LILLY AND COMPANY
  Company Number: JP-ELI_LILLY_AND_COMPANY-JP202508004391

PATIENT
  Age: 87 Year
  Sex: Male

DRUGS (2)
  1. DULOXETINE HYDROCHLORIDE [Suspect]
     Active Substance: DULOXETINE HYDROCHLORIDE
     Indication: Compression fracture
     Route: 048
  2. ELDECALCITOL [Concomitant]
     Active Substance: ELDECALCITOL

REACTIONS (2)
  - Deep vein thrombosis [Unknown]
  - Off label use [Unknown]
